FAERS Safety Report 9189211 (Version 1)
Quarter: 2013Q1

REPORT INFORMATION
  Report Type: Spontaneous
  Country: JP (occurrence: None)
  Receive Date: 20130322
  Receipt Date: 20130322
  Transmission Date: 20140127
  Serious: Yes (Death)
  Sender: FDA-Public Use
  Company Number: SYM-2013-01922

PATIENT
  Age: 67 Year
  Sex: Male

DRUGS (3)
  1. FLUOROURACIL [Suspect]
     Indication: OESOPHAGEAL CARCINOMA
  2. CISPLATIN [Suspect]
     Indication: OESOPHAGEAL CARCINOMA
  3. THERAPEUTIC RADIOPHARMACEUTICALS (THERAPEUTIC PHARM ACEUTICALS) [Suspect]
     Indication: OESOPHAGEAL CARCINOMA
     Dosage: 61.2 GY, UNKNOWN

REACTIONS (3)
  - Oesophageal fistula [None]
  - Pneumonia [None]
  - Respiratory failure [None]
